FAERS Safety Report 8799500 (Version 2)
Quarter: 2012Q4

REPORT INFORMATION
  Report Type: Spontaneous
  Country: FR (occurrence: None)
  Receive Date: 20120914
  Receipt Date: 20121010
  Transmission Date: 20130627
  Serious: Yes (Other)
  Sender: FDA-Public Use
  Company Number: 20120572

PATIENT
  Age: 55 Year
  Sex: Male

DRUGS (2)
  1. NICARDIPINE HYDROCHLORIDE [Suspect]
     Indication: HYPERTENSION
     Dosage: 4 mg/hour + 5 mg slow infusion intravenous
  2. NICARDIPINE HYDROCHLORIDE [Suspect]
     Indication: HYPERTENSION
     Dosage: 5 mg slow

REACTIONS (3)
  - Hypoxia [None]
  - Respiratory distress [None]
  - Condition aggravated [None]
